FAERS Safety Report 25494966 (Version 1)
Quarter: 2025Q2

REPORT INFORMATION
  Report Type: Spontaneous
  Country: US (occurrence: US)
  Receive Date: 20250630
  Receipt Date: 20250630
  Transmission Date: 20250716
  Serious: No
  Sender: DR REDDYS
  Company Number: US-DRL-USA-USA/2025/06/008731

PATIENT
  Age: 45 Year
  Sex: Male
  Weight: 65.77 kg

DRUGS (1)
  1. NICOTINE POLACRILEX [Suspect]
     Active Substance: NICOTINE
     Indication: Ex-tobacco user
     Route: 048
     Dates: start: 20250608, end: 20250608

REACTIONS (1)
  - Back pain [Recovered/Resolved]
